FAERS Safety Report 7798814-3 (Version None)
Quarter: 2011Q4

REPORT INFORMATION
  Report Type: 
  Country: None (occurrence: None)
  Receive Date: 20111005
  Receipt Date: 20111005
  Transmission Date: 20120403
  Serious: No
  Sender: FDA-Public Use
  Company Number: None

PATIENT
  Sex: Male
  Weight: 45.5 kg

DRUGS (3)
  1. PEG-L-ASPARAGINASE (K-H) [Suspect]
     Dosage: 3250 IU
  2. VINCRISTINE SULFATE [Suspect]
     Dosage: 2 MG
  3. METHOTREXATE [Suspect]
     Dosage: 145 MG

REACTIONS (4)
  - COUGH [None]
  - RESUSCITATION [None]
  - ACUTE LYMPHOCYTIC LEUKAEMIA [None]
  - UNRESPONSIVE TO STIMULI [None]
